FAERS Safety Report 4912081-7 (Version None)
Quarter: 2006Q1

REPORT INFORMATION
  Report Type: 
  Country: None (occurrence: None)
  Receive Date: 20060215
  Receipt Date: 20060109
  Transmission Date: 20060701
  Serious: Yes (Other)
  Sender: FDA-Public Use
  Company Number: PHMT2006CA00483

PATIENT
  Age: 90 Year
  Sex: Female

DRUGS (6)
  1. EXELON [Suspect]
     Indication: DEMENTIA ALZHEIMER'S TYPE
     Dosage: 1.5 MG, BID
     Dates: start: 20050919
  2. GLYBURIDE [Concomitant]
     Dosage: 1.25 UNK, UNK
  3. ASPIRIN [Concomitant]
  4. NITRO-DUR [Concomitant]
  5. INDERAL LA [Concomitant]
  6. ALDACTAZIDE [Concomitant]
     Dosage: 0.25 UNK, UNK

REACTIONS (2)
  - DIZZINESS [None]
  - ELECTROCARDIOGRAM QT PROLONGED [None]
